FAERS Safety Report 9278055 (Version 1)
Quarter: 2013Q2

REPORT INFORMATION
  Report Type: Spontaneous
  Country: US (occurrence: US)
  Receive Date: 20130508
  Receipt Date: 20130508
  Transmission Date: 20140414
  Serious: Yes (Other)
  Sender: FDA-Public Use
  Company Number: US-PFIZER INC-2013141180

PATIENT
  Sex: Female

DRUGS (1)
  1. LYRICA [Suspect]
     Dosage: UNK
     Route: 048
     Dates: start: 2008

REACTIONS (6)
  - Back disorder [Unknown]
  - Breakthrough pain [Recovered/Resolved]
  - Dizziness [Unknown]
  - Weight increased [Unknown]
  - Muscle spasms [Unknown]
  - Feeling drunk [Unknown]
